FAERS Safety Report 15247926 (Version 1)
Quarter: 2018Q3

REPORT INFORMATION
  Report Type: Spontaneous
  Country: CL (occurrence: CL)
  Receive Date: 20180807
  Receipt Date: 20180807
  Transmission Date: 20181010
  Serious: Yes (Hospitalization)
  Sender: FDA-Public Use
  Company Number: CL-ROCHE-2161624

PATIENT
  Sex: Female

DRUGS (2)
  1. REDITUX [Concomitant]
     Active Substance: RITUXIMAB
  2. MABTHERA [Suspect]
     Active Substance: RITUXIMAB
     Indication: IMMUNODEFICIENCY
     Route: 065
     Dates: start: 2016

REACTIONS (4)
  - Bacterial infection [Unknown]
  - Intentional product use issue [Unknown]
  - Granulomatosis with polyangiitis [Not Recovered/Not Resolved]
  - Off label use [Unknown]
